FAERS Safety Report 16811314 (Version 8)
Quarter: 2020Q1

REPORT INFORMATION
  Report Type: Spontaneous
  Country: US (occurrence: US)
  Receive Date: 20190916
  Receipt Date: 20200326
  Transmission Date: 20200409
  Serious: Yes (Hospitalization)
  Sender: FDA-Public Use
  Company Number: US-ACTELION-A-NJ2019-195438

PATIENT
  Age: 45 Year
  Sex: Male
  Weight: 159.64 kg

DRUGS (9)
  1. VELETRI [Suspect]
     Active Substance: EPOPROSTENOL
     Indication: PORTOPULMONARY HYPERTENSION
     Dosage: 12 NG/KG, PER MIN
     Route: 042
     Dates: start: 201902
  2. KCL [Concomitant]
     Active Substance: POTASSIUM CHLORIDE
  3. VELETRI [Suspect]
     Active Substance: EPOPROSTENOL
     Dosage: 12.9 NG/KG, PER MIN
     Route: 042
  4. REVATIO [Concomitant]
     Active Substance: SILDENAFIL CITRATE
     Dosage: 20 MG, TID
     Dates: start: 20190128
  5. SILDENAFIL. [Concomitant]
     Active Substance: SILDENAFIL
     Dosage: 20 MG, TID
     Dates: start: 201901
  6. TORSEMIDE. [Concomitant]
     Active Substance: TORSEMIDE
  7. OPSUMIT [Suspect]
     Active Substance: MACITENTAN
     Indication: PORTOPULMONARY HYPERTENSION
     Dosage: 10 MG, QD
     Route: 048
     Dates: start: 201903
  8. SPIRONOLACTONE. [Concomitant]
     Active Substance: SPIRONOLACTONE
     Dosage: 75 MG, QD
  9. TADALAFIL. [Concomitant]
     Active Substance: TADALAFIL
     Dosage: 20 MG

REACTIONS (16)
  - Pyrexia [Recovering/Resolving]
  - Fatigue [Not Recovered/Not Resolved]
  - Rash [Recovering/Resolving]
  - Catheter site haemorrhage [Unknown]
  - Catheter site extravasation [Unknown]
  - Peripheral swelling [Recovering/Resolving]
  - Dyspnoea exertional [Not Recovered/Not Resolved]
  - Pneumonia [Unknown]
  - Abscess limb [Recovering/Resolving]
  - Cellulitis [Recovering/Resolving]
  - Dyspnoea [Not Recovered/Not Resolved]
  - Eczema [Recovering/Resolving]
  - Haematoma [Recovering/Resolving]
  - Vascular device infection [Unknown]
  - Chills [Recovering/Resolving]
  - Catheter placement [Unknown]

NARRATIVE: CASE EVENT DATE: 20190902
